FAERS Safety Report 4551931-3 (Version None)
Quarter: 2005Q1

REPORT INFORMATION
  Report Type: 
  Country: None (occurrence: None)
  Receive Date: 20050113
  Receipt Date: 20050107
  Transmission Date: 20050727
  Serious: Yes (Other)
  Sender: FDA-Public Use
  Company Number: 04-11-1617

PATIENT
  Age: 42 Year
  Sex: Female

DRUGS (2)
  1. CLOZAPINE [Suspect]
     Dosage: 25-600MG QD ORAL
     Route: 048
     Dates: start: 20020401, end: 20041101
  2. CHEMOTHERAPY [Suspect]
     Indication: BREAST CANCER

REACTIONS (4)
  - AGRANULOCYTOSIS [None]
  - PSYCHOTIC DISORDER [None]
  - REFUSAL OF TREATMENT BY PATIENT [None]
  - WHITE BLOOD CELL COUNT DECREASED [None]
